FAERS Safety Report 19368547 (Version 1)
Quarter: 2021Q2

REPORT INFORMATION
  Report Type: Spontaneous
  Country: US (occurrence: US)
  Receive Date: 20210602
  Receipt Date: 20210602
  Transmission Date: 20210717
  Serious: No
  Sender: FDA-Public Use
  Company Number: US-ROCHE-2675101

PATIENT
  Sex: Female

DRUGS (2)
  1. OCREVUS [Suspect]
     Active Substance: OCRELIZUMAB
     Dosage: SINGLE 600 MG IV INFUSION EVERY 6 MONTHS
     Route: 042
     Dates: start: 20200601
  2. OCREVUS [Suspect]
     Active Substance: OCRELIZUMAB
     Indication: RELAPSING-REMITTING MULTIPLE SCLEROSIS
     Dosage: TWO 300 MG IV INFUSIONS SEPARATED BY 2 WEEK
     Route: 042
     Dates: start: 201909, end: 201909

REACTIONS (1)
  - Pancreatic enzymes increased [Not Recovered/Not Resolved]
